FAERS Safety Report 6488513-2 (Version None)
Quarter: 2009Q4

REPORT INFORMATION
  Report Type: 
  Country: None (occurrence: None)
  Receive Date: 20091210
  Receipt Date: 20090915
  Transmission Date: 20100525
  Serious: No
  Sender: FDA-Public Use
  Company Number: US-AMGEN-KDL362461

PATIENT
  Sex: Female
  Weight: 69.5 kg

DRUGS (10)
  1. ENBREL [Suspect]
     Indication: RHEUMATOID ARTHRITIS
     Route: 058
     Dates: start: 20081201
  2. ACYCLOVIR [Concomitant]
  3. AMLODIPINE [Concomitant]
  4. ASPIRIN [Concomitant]
  5. RHINOCORT [Concomitant]
  6. LEXAPRO [Concomitant]
  7. ESTRADIOL [Concomitant]
  8. HYDROCHLOROTHIAZIDE [Concomitant]
  9. SEROQUEL [Concomitant]
  10. LOVAZA [Concomitant]

REACTIONS (6)
  - ARTHRITIS [None]
  - CLUMSINESS [None]
  - FATIGUE [None]
  - HOT FLUSH [None]
  - HYPERHIDROSIS [None]
  - PYREXIA [None]
